FAERS Safety Report 5305502-1 (Version None)
Quarter: 2007Q2

REPORT INFORMATION
  Report Type: 
  Country: None (occurrence: None)
  Receive Date: 20070424
  Receipt Date: 20070412
  Transmission Date: 20071010
  Serious: Yes (Other)
  Sender: FDA-Public Use
  Company Number: US-JNJFOC-20070403294

PATIENT
  Sex: Female
  Weight: 68.04 kg

DRUGS (5)
  1. DURAGESIC-100 [Suspect]
     Indication: ANALGESIC EFFECT
     Route: 062
  2. FENTANYL TRANSDERMAL SYSTEM [Suspect]
     Indication: ANALGESIC EFFECT
     Route: 062
  3. PAXIL [Concomitant]
     Indication: ANXIETY
     Route: 048
  4. PROPRANOLOL [Concomitant]
     Indication: VARICOSE VEIN
     Route: 048
  5. NEXIUM [Concomitant]
     Indication: GASTRIC DISORDER
     Route: 048

REACTIONS (10)
  - APPLICATION SITE PRURITUS [None]
  - DERMATITIS CONTACT [None]
  - DRUG WITHDRAWAL SYNDROME [None]
  - GALLBLADDER OBSTRUCTION [None]
  - LETHARGY [None]
  - LOCALISED OEDEMA [None]
  - PHARMACEUTICAL PRODUCT COMPLAINT [None]
  - PRURITUS [None]
  - VARICOSE VEIN [None]
  - WRONG TECHNIQUE IN DRUG USAGE PROCESS [None]
